FAERS Safety Report 4418054-5 (Version None)
Quarter: 2004Q3

REPORT INFORMATION
  Report Type: 
  Country: None (occurrence: None)
  Receive Date: 20040803
  Receipt Date: 20040721
  Transmission Date: 20050211
  Serious: Yes (Hospitalization, Other)
  Sender: FDA-Public Use
  Company Number: 2003120919

PATIENT
  Age: 62 Year
  Sex: Female

DRUGS (1)
  1. ZOLOFT [Suspect]
     Indication: DEPRESSION
     Dosage: 50 MG ;  5 YEARS AGO

REACTIONS (4)
  - BLINDNESS TRANSIENT [None]
  - LYMPHOMA [None]
  - VISUAL DISTURBANCE [None]
  - VITREOUS DISORDER [None]
